FAERS Safety Report 6019239-7 (Version None)
Quarter: 2008Q4

REPORT INFORMATION
  Report Type: 
  Country: None (occurrence: None)
  Receive Date: 20081224
  Receipt Date: 20081216
  Transmission Date: 20090506
  Serious: Yes (Disabling)
  Sender: FDA-Public Use
  Company Number: JP-ASTRAZENECA-2008SE04666

PATIENT
  Age: 77 Year
  Sex: Female

DRUGS (7)
  1. BLOPRESS [Suspect]
     Indication: CARDIAC FAILURE CHRONIC
     Route: 048
     Dates: start: 20070510, end: 20080124
  2. DIART [Concomitant]
     Indication: CARDIAC FAILURE CHRONIC
     Route: 048
     Dates: end: 20080124
  3. ARTIST [Concomitant]
     Indication: CARDIAC FAILURE CHRONIC
     Route: 048
     Dates: end: 20080124
  4. ASPIRIN [Concomitant]
     Indication: ANGINA PECTORIS
     Route: 048
     Dates: end: 20080124
  5. GASTER D [Concomitant]
     Indication: GASTRITIS
     Route: 048
     Dates: end: 20080124
  6. PANTOSIN [Concomitant]
     Indication: CONSTIPATION
     Route: 048
     Dates: end: 20080124
  7. MAGNESIUM OXIDE [Concomitant]
     Indication: CONSTIPATION
     Route: 048
     Dates: end: 20080124

REACTIONS (1)
  - CEREBRAL HAEMORRHAGE [None]
